FAERS Safety Report 5566330-5 (Version None)
Quarter: 2007Q4

REPORT INFORMATION
  Report Type: 
  Country: None (occurrence: None)
  Receive Date: 20071219
  Receipt Date: 20071207
  Transmission Date: 20080405
  Serious: Yes (Hospitalization)
  Sender: FDA-Public Use
  Company Number: PHHO2007FR18670

PATIENT
  Age: 65 Year
  Sex: Male
  Weight: 73 kg

DRUGS (2)
  1. AMN107 [Suspect]
     Indication: CHRONIC MYELOID LEUKAEMIA
     Dosage: 800 MG, QD
     Route: 048
     Dates: start: 20071029
  2. KARDEGIC [Concomitant]
     Indication: CEREBROVASCULAR ACCIDENT

REACTIONS (5)
  - ANAEMIA [None]
  - DYSPNOEA [None]
  - PYREXIA [None]
  - THROMBOCYTOPENIA [None]
  - VIRAL INFECTION [None]
